FAERS Safety Report 7610695-7 (Version None)
Quarter: 2011Q3

REPORT INFORMATION
  Report Type: 
  Country: None (occurrence: None)
  Receive Date: 20110707
  Receipt Date: 20110622
  Transmission Date: 20111222
  Serious: Yes (Hospitalization)
  Sender: FDA-Public Use
  Company Number: 2011MA006902

PATIENT
  Age: 63 Year

DRUGS (6)
  1. SULFATRIM PEDIATRIC [Suspect]
     Indication: PNEUMOCYSTIS JIROVECI PNEUMONIA
     Dosage: IV
     Route: 042
  2. CYCLOPHOSPHAMIDE [Concomitant]
  3. DOXORUBICIN HCL [Concomitant]
  4. RITUXIMAB [Concomitant]
  5. PREDNISONE [Concomitant]
  6. VINCRISTINE [Concomitant]

REACTIONS (3)
  - DRUG RASH WITH EOSINOPHILIA AND SYSTEMIC SYMPTOMS [None]
  - ORAL CANDIDIASIS [None]
  - MIXED LIVER INJURY [None]
